FAERS Safety Report 22114751 (Version 1)
Quarter: 2023Q1

REPORT INFORMATION
  Report Type: Spontaneous
  Country: US (occurrence: None)
  Receive Date: 20230317
  Receipt Date: 20230317
  Transmission Date: 20230417
  Serious: No
  Sender: FDA-Public Use
  Company Number: None

PATIENT
  Age: 75 Year
  Sex: Male

DRUGS (2)
  1. ICATIBANT ACETATE [Suspect]
     Active Substance: ICATIBANT ACETATE
     Indication: Immune system disorder
     Dosage: FREQUENCY : AS NEEDED;?
     Route: 058
     Dates: start: 20230124
  2. ICATIBANT ACETATE [Suspect]
     Active Substance: ICATIBANT ACETATE
     Indication: Immune system disorder

REACTIONS (2)
  - Gastrointestinal disorder [None]
  - Ill-defined disorder [None]

NARRATIVE: CASE EVENT DATE: 20230316
